FAERS Safety Report 10620492 (Version 1)
Quarter: 2014Q4

REPORT INFORMATION
  Report Type: Spontaneous
  Country: US (occurrence: US)
  Receive Date: 20141202
  Receipt Date: 20141202
  Transmission Date: 20150529
  Serious: No
  Sender: FDA-Public Use
  Company Number: US-009507513-1412USA000444

PATIENT
  Sex: Female

DRUGS (1)
  1. CLARITIN [Suspect]
     Active Substance: LORATADINE
     Indication: RESPIRATORY DISORDER
     Dosage: UNK, UNKNOWN
     Route: 048

REACTIONS (3)
  - Cough [Unknown]
  - Product use issue [Unknown]
  - Eye haemorrhage [Unknown]
